FAERS Safety Report 4861637-9 (Version None)
Quarter: 2005Q4

REPORT INFORMATION
  Report Type: 
  Country: None (occurrence: None)
  Receive Date: 20051130
  Receipt Date: 20050415
  Transmission Date: 20060501
  Serious: Yes (Other)
  Sender: FDA-Public Use
  Company Number: 200510634BWH

PATIENT
  Age: 67 Year
  Sex: Female

DRUGS (5)
  1. CIPRO [Suspect]
     Indication: CYSTITIS
     Dates: start: 20041101
  2. PRILOSEC [Concomitant]
  3. SYNTHROID [Concomitant]
  4. VICODIN [Concomitant]
  5. RELAFEN [Concomitant]

REACTIONS (4)
  - ARTHRALGIA [None]
  - HEAD DISCOMFORT [None]
  - TENDONITIS [None]
  - WHIPLASH INJURY [None]
